FAERS Safety Report 5612260-X (Version None)
Quarter: 2008Q1

REPORT INFORMATION
  Report Type: 
  Country: None (occurrence: None)
  Receive Date: 20080131
  Receipt Date: 20080131
  Transmission Date: 20080703
  Serious: Yes (Hospitalization)
  Sender: FDA-Public Use
  Company Number: None

PATIENT
  Age: 65 Year
  Sex: Male

DRUGS (1)
  1. HUMIRA [Suspect]
     Indication: PSORIASIS
     Dosage: 40 MG WEEKLY SQ ONE DOSE ONLY
     Route: 058
     Dates: start: 20080127, end: 20080127

REACTIONS (3)
  - ASTHENIA [None]
  - HYPERTENSION [None]
  - VISION BLURRED [None]
